FAERS Safety Report 8669425 (Version 2)
Quarter: 2013Q4

REPORT INFORMATION
  Report Type: Spontaneous
  Country: GB (occurrence: GB)
  Receive Date: 20120718
  Receipt Date: 20131106
  Transmission Date: 20140711
  Serious: Yes (Life-Threatening, Hospitalization, Other)
  Sender: FDA-Public Use
  Company Number: GB-009507513-1203GBR00063

PATIENT
  Age: 48 Year
  Sex: Male

DRUGS (10)
  1. COZAAR [Suspect]
     Dosage: UNK UNK, QD
     Route: 048
  2. INDAPAMIDE [Concomitant]
     Indication: HYPERTENSION
     Dosage: 2.5 MG, QD
  3. SIMVASTATIN [Concomitant]
     Dosage: 40 MG, QD
  4. ASPIRIN [Concomitant]
     Dosage: 75 MG, QD
  5. SERETIDE [Concomitant]
  6. FOLIC ACID [Concomitant]
  7. DILTIAZEM SR [Concomitant]
     Dosage: 60 MG, QD
  8. SPIRONOLACTONE [Concomitant]
     Dosage: 25 MG, QD
  9. ALBUTEROL [Concomitant]
  10. AMOXICILLIN [Concomitant]

REACTIONS (3)
  - Stridor [Recovered/Resolved]
  - Swollen tongue [Recovering/Resolving]
  - Swelling face [Unknown]
